FAERS Safety Report 5377673-2 (Version None)
Quarter: 2007Q3

REPORT INFORMATION
  Report Type: 
  Country: None (occurrence: None)
  Receive Date: 20070703
  Receipt Date: 20070625
  Transmission Date: 20080115
  Serious: Yes (Hospitalization, Other)
  Sender: FDA-Public Use
  Company Number: HQWYE299021JUL04

PATIENT
  Sex: Female
  Weight: 61.29 kg

DRUGS (2)
  1. PREMARIN [Suspect]
  2. PROVERA [Suspect]
     Indication: HORMONE REPLACEMENT THERAPY
     Dosage: UNSPECIFIED
     Route: 065
     Dates: start: 19930401, end: 20011001

REACTIONS (1)
  - BREAST CANCER [None]
